FAERS Safety Report 18277415 (Version 1)
Quarter: 2020Q3

REPORT INFORMATION
  Report Type: Spontaneous
  Country: US (occurrence: US)
  Receive Date: 20200917
  Receipt Date: 20200917
  Transmission Date: 20201103
  Serious: No
  Sender: FDA-Public Use
  Company Number: None

PATIENT
  Age: 57 Year
  Sex: Female
  Weight: 112.5 kg

DRUGS (27)
  1. COENZYME Q10 [Concomitant]
     Active Substance: DIETARY SUPPLEMENT\UBIDECARENONE
  2. D3 PM [Concomitant]
  3. POTASSIUM CITRATE. [Concomitant]
     Active Substance: POTASSIUM CITRATE
  4. BUPROPRION [Concomitant]
     Active Substance: BUPROPION
  5. ESOMEPRAZOLE. [Concomitant]
     Active Substance: ESOMEPRAZOLE MAGNESIUM
  6. ADDERALL [Concomitant]
     Active Substance: AMPHETAMINE ASPARTATE\AMPHETAMINE SULFATE\DEXTROAMPHETAMINE SACCHARATE\DEXTROAMPHETAMINE SULFATE
  7. ALPRAZOLAM. [Concomitant]
     Active Substance: ALPRAZOLAM
  8. OSTEO BIFLEX [Concomitant]
     Active Substance: CHONDROITIN SULFATE A\GLUCOSAMINE
  9. HYDROCODONE [Concomitant]
     Active Substance: HYDROCODONE
  10. GINKO BILOBA [Concomitant]
     Active Substance: GINKGO
  11. BUPROPRION BARIATRIC MULTIVITAMIN [Concomitant]
  12. LEVOTHYROXINE. [Concomitant]
     Active Substance: LEVOTHYROXINE
  13. LIOTHYRONINE [Concomitant]
     Active Substance: LIOTHYRONINE
  14. LISINOPRIL. [Concomitant]
     Active Substance: LISINOPRIL
  15. ONDANSETRON [Concomitant]
     Active Substance: ONDANSETRON
  16. CURCUMIN IRON (FERROUS FUMARATE) [Concomitant]
  17. SUPPLEMENTS + VITAMINS [Concomitant]
  18. KRILL OIL [Concomitant]
     Active Substance: DIETARY SUPPLEMENT\KRILL OIL
  19. DEXTROAMPHET SACCHARAT, AMPHET ASPARTATE, DEXTROAMPHET SULFATE AND AMPHET SULFAT [Suspect]
     Active Substance: AMPHETAMINE ASPARTATE\AMPHETAMINE SULFATE\DEXTROAMPHETAMINE SACCHARATE\DEXTROAMPHETAMINE SULFATE
     Indication: ATTENTION DEFICIT HYPERACTIVITY DISORDER
     Dosage: ?          QUANTITY:1 TABLET(S);?
     Route: 048
  20. GABAPENTIN. [Concomitant]
     Active Substance: GABAPENTIN
  21. RIZATRIPTAN BENZOATE. [Concomitant]
     Active Substance: RIZATRIPTAN BENZOATE
  22. MAGNESIUM CITRATE. [Concomitant]
     Active Substance: MAGNESIUM CITRATE
  23. TESSALON [Concomitant]
     Active Substance: BENZONATATE
  24. SUDAFED [Concomitant]
     Active Substance: PSEUDOEPHEDRINE HYDROCHLORIDE
  25. MUCINEX [Concomitant]
     Active Substance: GUAIFENESIN
  26. B?COMBO B12 LIQUID [Concomitant]
  27. CALCIUM CITRATE [Concomitant]
     Active Substance: CALCIUM CITRATE

REACTIONS (5)
  - Disturbance in attention [None]
  - Lethargy [None]
  - Product substitution issue [None]
  - Somnolence [None]
  - Migraine [None]

NARRATIVE: CASE EVENT DATE: 20200916
